FAERS Safety Report 5911574-3 (Version None)
Quarter: 2008Q4

REPORT INFORMATION
  Report Type: 
  Country: None (occurrence: None)
  Receive Date: 20081003
  Receipt Date: 20080922
  Transmission Date: 20090506
  Serious: Yes (Life-Threatening)
  Sender: FDA-Public Use
  Company Number: ENC200800182

PATIENT
  Age: 68 Year
  Sex: Male

DRUGS (5)
  1. ARGATROBAN [Suspect]
     Indication: CEREBRAL INFARCTION
     Dosage: 120 MG, SINGLE, INTRAVENOUS
     Route: 042
     Dates: start: 20080706, end: 20080706
  2. RADICUT (EDARAVONE) [Concomitant]
  3. CATACLOT (OZAGREL SODIUM) [Concomitant]
  4. SOLDEM 3A (CARBOHYDRATES NOS, POTASSIUM CHLORIDE, SODIUM CHLORIDE, SOD [Concomitant]
  5. GRTPA (ALTEPLASE) [Concomitant]

REACTIONS (2)
  - DEPRESSED LEVEL OF CONSCIOUSNESS [None]
  - HAEMORRHAGIC CEREBRAL INFARCTION [None]
